FAERS Safety Report 8888271 (Version 1)
Quarter: 2012Q4

REPORT INFORMATION
  Report Type: 
  Country: SE (occurrence: SE)
  Receive Date: 20121106
  Receipt Date: 20121106
  Transmission Date: 20130627
  Serious: Yes (Hospitalization)
  Sender: FDA-Public Use
  Company Number: SE-PFIZER INC-2012269137

PATIENT
  Age: 35 Year
  Sex: Female
  Weight: 74 kg

DRUGS (15)
  1. GENOTROPIN [Suspect]
     Indication: PANHYPOPITUITARISM
     Dosage: 0.4 mg, 1x/day, 7 injections/ week
     Route: 058
     Dates: start: 20061015
  2. FOSAMAX [Concomitant]
     Indication: OSTEOPOROSIS
     Dosage: UNK
     Dates: start: 19950101
  3. HIPREX [Concomitant]
     Indication: URINATION DIFFICULTY
     Dosage: UNK
     Dates: start: 19950101
  4. OVESTERIN [Concomitant]
     Indication: BLOOD LUTEINISING HORMONE DECREASED
     Dosage: UNK
     Dates: start: 20080121
  5. OVESTERIN [Concomitant]
     Indication: BLOOD FOLLICLE STIMULATING HORMONE DECREASED
  6. OVESTERIN [Concomitant]
     Indication: HYPOGONADISM FEMALE
  7. NEXIUM [Concomitant]
     Indication: GASTRITIS
     Dosage: UNK
     Dates: start: 20090319
  8. KALCIPOS [Concomitant]
     Indication: OSTEOPOROSIS
     Dosage: UNK
     Dates: start: 19950101
  9. LEVAXIN [Concomitant]
     Indication: BLOOD THYROID STIMULATING HORMONE DECREASED
     Dosage: UNK
     Dates: start: 19950101
  10. LEVAXIN [Concomitant]
     Indication: PRIMARY HYPOTHYROIDISM
  11. MINIRIN SPRAY [Concomitant]
     Indication: BLOOD ANTIDIURETIC HORMONE DECREASED
     Dosage: UNK
     Dates: start: 19980501
  12. MEDROLE [Concomitant]
     Indication: ADRENAL INSUFFICIENCY
     Dosage: UNK
     Dates: start: 20101222
  13. SPIRONOLAKTON [Concomitant]
     Indication: OEDEMA
     Dosage: UNK
     Dates: start: 20060517
  14. FOLACIN [Concomitant]
     Indication: FOLIC ACID DEFICIENCY
     Dosage: UNK
     Dates: start: 20070416
  15. PRASTERON [Concomitant]
     Indication: DEHYDROEPIANDROSTERONE DECREASED
     Dosage: UNK
     Dates: start: 20030501

REACTIONS (2)
  - Granulomatosis with polyangiitis [Unknown]
  - Respiratory tract infection [Unknown]
